FAERS Safety Report 19764195 (Version 3)
Quarter: 2021Q3

REPORT INFORMATION
  Report Type: Report from Study
  Country: ES (occurrence: ES)
  Receive Date: 20210830
  Receipt Date: 20210926
  Transmission Date: 20211014
  Serious: Yes (Life-Threatening)
  Sender: FDA-Public Use
  Company Number: ES-ROCHE-2898834

PATIENT
  Age: 61 Year
  Sex: Male
  Weight: 75 kg

DRUGS (10)
  1. PARAPRES [Concomitant]
     Active Substance: CANDESARTAN CILEXETIL
     Indication: HYPERTENSION
  2. CISPLATIN. [Suspect]
     Active Substance: CISPLATIN
     Indication: BILE DUCT CANCER
     Dosage: ON 10/AUG/2021, HE RECEIVED MOST RECENT DOSE OF CISPLATIN (47 MG) PRIOR TO ONSET OF SERIOUS ADVERSE
     Route: 042
     Dates: start: 20210803
  3. SIMVASTATINE [Concomitant]
     Active Substance: SIMVASTATIN
     Indication: HYPERLIPIDAEMIA
  4. FOSAPREPITANT [Concomitant]
     Active Substance: FOSAPREPITANT
     Dates: start: 20210803
  5. PALONOSETRON. [Concomitant]
     Active Substance: PALONOSETRON HYDROCHLORIDE
     Dates: start: 20210803
  6. PLACEBO [Suspect]
     Active Substance: UNSPECIFIED INGREDIENT
     Indication: BILE DUCT CANCER
     Dosage: MOST RECENT DOSE OF STUDY DRUG PRIOR TO AE/SAE 03?AUG?2021
     Route: 042
     Dates: start: 20210803
  7. METFORMINA [Concomitant]
     Active Substance: METFORMIN HYDROCHLORIDE
     Indication: DIABETES MELLITUS
  8. ATEZOLIZUMAB. [Suspect]
     Active Substance: ATEZOLIZUMAB
     Indication: BILE DUCT CANCER
     Dosage: ON 03/AUG/2021, HE RECEIVED MOST RECENT DOSE OF ATEZOLIZUMAB (1200 MG) PRIOR TO ONSET OF SERIOUS ADV
     Route: 041
     Dates: start: 20210803
  9. GEMCITABINE. [Suspect]
     Active Substance: GEMCITABINE
     Indication: BILE DUCT CANCER
     Dosage: ON 10/AUG/2021, HE RECEIVED MOST RECENT DOSE OF GEMCITABINE (1900 MG) PRIOR TO ONSET OF SERIOUS ADVE
     Route: 042
     Dates: start: 20210803
  10. DEXAMETASONA [Concomitant]
     Active Substance: DEXAMETHASONE
     Route: 042
     Dates: start: 20210803

REACTIONS (1)
  - Neutropenia [Recovered/Resolved]

NARRATIVE: CASE EVENT DATE: 20210823
